FAERS Safety Report 13957109 (Version 1)
Quarter: 2017Q3

REPORT INFORMATION
  Report Type: Spontaneous
  Country: US (occurrence: US)
  Receive Date: 20170912
  Receipt Date: 20170912
  Transmission Date: 20171128
  Serious: Yes (Hospitalization)
  Sender: FDA-Public Use
  Company Number: US-BIOGEN-2017BI00456601

PATIENT
  Age: 69 Year
  Sex: Female

DRUGS (2)
  1. AVONEX [Suspect]
     Active Substance: INTERFERON BETA-1A
     Indication: MULTIPLE SCLEROSIS
     Route: 065
     Dates: start: 19990601, end: 20151023
  2. AVONEX [Suspect]
     Active Substance: INTERFERON BETA-1A
     Route: 065
     Dates: start: 20160113

REACTIONS (4)
  - Loss of consciousness [Unknown]
  - Seizure [Unknown]
  - Dizziness [Unknown]
  - Abdominal pain [Unknown]

NARRATIVE: CASE EVENT DATE: 201709
